FAERS Safety Report 7070319-7 (Version None)
Quarter: 2010Q4

REPORT INFORMATION
  Report Type: 
  Country: None (occurrence: None)
  Receive Date: 20101028
  Receipt Date: 20101004
  Transmission Date: 20110411
  Serious: No
  Sender: FDA-Public Use
  Company Number: US-WYE-H17970010

PATIENT
  Sex: Male
  Weight: 80.81 kg

DRUGS (5)
  1. PHOSPHOLINE IODIDE [Suspect]
     Indication: GLAUCOMA
     Route: 031
     Dates: start: 20100901
  2. KETOROLAC TROMETHAMINE [Concomitant]
  3. ALPHAGAN [Concomitant]
  4. LUMIGAN [Concomitant]
  5. DORZOLAMIDE HYDROCHLORIDE AND TIMOLOL MALEATE [Concomitant]

REACTIONS (3)
  - CONDITION AGGRAVATED [None]
  - DIZZINESS [None]
  - INCORRECT DOSE ADMINISTERED [None]
